FAERS Safety Report 4318983-7 (Version None)
Quarter: 2004Q1

REPORT INFORMATION
  Report Type: 
  Country: None (occurrence: None)
  Receive Date: 20040316
  Receipt Date: 20040301
  Transmission Date: 20041129
  Serious: Yes (Other)
  Sender: FDA-Public Use
  Company Number: JP_040302713

PATIENT
  Age: 65 Year
  Sex: Male

DRUGS (1)
  1. GEMZAR [Suspect]

REACTIONS (2)
  - INTERSTITIAL LUNG DISEASE [None]
  - PNEUMOCYSTIS CARINII PNEUMONIA [None]
